FAERS Safety Report 20311349 (Version 3)
Quarter: 2022Q1

REPORT INFORMATION
  Report Type: Spontaneous
  Country: BE (occurrence: BE)
  Receive Date: 20220107
  Receipt Date: 20220215
  Transmission Date: 20220423
  Serious: Yes (Death, Life-Threatening, Hospitalization, Other)
  Sender: FDA-Public Use
  Company Number: BE-EMA-DD-20211228-joon_u1-110653

PATIENT
  Age: 33 Year
  Sex: Male

DRUGS (10)
  1. OXALIPLATIN [Suspect]
     Active Substance: OXALIPLATIN
     Indication: Adenocarcinoma of colon
     Dosage: UNK
     Route: 041
     Dates: start: 201306, end: 2013
  2. FLUOROURACIL [Suspect]
     Active Substance: FLUOROURACIL
     Indication: Adenocarcinoma of colon
     Dosage: UNK
     Route: 041
     Dates: start: 201306, end: 201311
  3. FLUOROURACIL [Suspect]
     Active Substance: FLUOROURACIL
     Dosage: PART OF DE GRAMONT REGIMEN
     Route: 041
     Dates: start: 2015, end: 2015
  4. BEVACIZUMAB [Suspect]
     Active Substance: BEVACIZUMAB
     Indication: Adenocarcinoma of colon
     Dosage: UNK
     Route: 065
     Dates: start: 201405, end: 201510
  5. LEUCOVORIN CALCIUM [Suspect]
     Active Substance: LEUCOVORIN CALCIUM
     Indication: Adenocarcinoma of colon
     Dosage: UNK
     Dates: start: 201306, end: 201311
  6. LEUCOVORIN CALCIUM [Suspect]
     Active Substance: LEUCOVORIN CALCIUM
     Dosage: UNK (PART OF DE GRAMONT REGIMEN)
     Route: 041
     Dates: start: 2015, end: 2015
  7. IRINOTECAN [Suspect]
     Active Substance: IRINOTECAN
     Indication: Adenocarcinoma of colon
     Dosage: UNK
     Route: 041
     Dates: start: 201405, end: 201504
  8. PEMBROLIZUMAB [Suspect]
     Active Substance: PEMBROLIZUMAB
     Indication: Adenocarcinoma of colon
     Dosage: UNK (35 CYCLES RECEIVED)
     Route: 041
     Dates: start: 201512, end: 201711
  9. LEUCOVORIN [Suspect]
     Active Substance: LEUCOVORIN
     Indication: Adenocarcinoma of colon
     Dosage: UNK (PART OF DE GRAMONT REGIMEN)
     Route: 041
     Dates: start: 2015, end: 2015
  10. IPILIMUMAB [Suspect]
     Active Substance: IPILIMUMAB
     Indication: Adenocarcinoma of colon
     Dosage: UNK (FOR 10 MONTHS)
     Route: 065
     Dates: start: 201809, end: 201907

REACTIONS (13)
  - Ileal perforation [Fatal]
  - Back injury [Fatal]
  - Soft tissue infection [Fatal]
  - Fistula of small intestine [Unknown]
  - Klebsiella infection [Unknown]
  - Streptococcal infection [Unknown]
  - Gastrointestinal toxicity [Unknown]
  - Lactobacillus infection [Unknown]
  - Escherichia infection [Unknown]
  - Inflammation [Unknown]
  - Device related sepsis [Unknown]
  - Staphylococcal sepsis [Unknown]
  - Tumour necrosis [Fatal]

NARRATIVE: CASE EVENT DATE: 20190101
